FAERS Safety Report 5034509-7 (Version None)
Quarter: 2006Q2

REPORT INFORMATION
  Report Type: 
  Country: None (occurrence: None)
  Receive Date: 20060623
  Receipt Date: 20060623
  Transmission Date: 20061013
  Serious: Yes (Other)
  Sender: FDA-Public Use
  Company Number: None

PATIENT
  Sex: Female
  Weight: 50.3493 kg

DRUGS (2)
  1. ZOCOR [Suspect]
     Indication: HYPERLIPIDAEMIA
     Dosage: 20 MG  + 40 MG DAILY PO
     Route: 048
     Dates: start: 20050801, end: 20051001
  2. CAPTOPRIL [Suspect]
     Indication: HYPERTENSION
     Dosage: 10 MG DAILY PO
     Route: 048
     Dates: start: 20051214, end: 20060501

REACTIONS (5)
  - BLOOD PRESSURE INCREASED [None]
  - DYSPEPSIA [None]
  - HEART RATE INCREASED [None]
  - MUSCULAR WEAKNESS [None]
  - PARAESTHESIA [None]
